FAERS Safety Report 7937489-7 (Version None)
Quarter: 2011Q4

REPORT INFORMATION
  Report Type: 
  Country: None (occurrence: None)
  Receive Date: 20111123
  Receipt Date: 20111114
  Transmission Date: 20120403
  Serious: Yes (Hospitalization)
  Sender: FDA-Public Use
  Company Number: US-AMGEN-USASP2011029998

PATIENT
  Age: 58 Year
  Sex: Female

DRUGS (7)
  1. ENBREL [Suspect]
     Indication: PSORIATIC ARTHROPATHY
     Dosage: 50 MG, QWK
     Dates: start: 20110525, end: 20110525
  2. FOLIC ACID [Concomitant]
     Dosage: UNK
  3. METHOTREXATE [Concomitant]
     Dosage: UNK
  4. FLONASE [Concomitant]
     Dosage: 0.05 MG, QD
  5. FOSAMAX [Concomitant]
     Dosage: 70 MG, QWK
  6. PREMPRO [Concomitant]
     Dosage: UNK MG, QWK
  7. FISH OIL [Concomitant]
     Dosage: UNK

REACTIONS (17)
  - DRUG INTOLERANCE [None]
  - ARTHRALGIA [None]
  - FIBROMYALGIA [None]
  - PSORIASIS [None]
  - MYALGIA [None]
  - ANXIETY [None]
  - PNEUMONIA [None]
  - CHEST PAIN [None]
  - TENDERNESS [None]
  - DEPRESSION [None]
  - FATIGUE [None]
  - SLEEP DISORDER [None]
  - OSTEOPENIA [None]
  - COUGH [None]
  - SINUSITIS [None]
  - DYSPNOEA [None]
  - BURSITIS [None]
